FAERS Safety Report 4449205-4 (Version None)
Quarter: 2004Q3

REPORT INFORMATION
  Report Type: 
  Country: None (occurrence: None)
  Receive Date: 20040910
  Receipt Date: 20040826
  Transmission Date: 20050211
  Serious: Yes (Hospitalization)
  Sender: FDA-Public Use
  Company Number: 04P-020-0271675-00

PATIENT
  Age: 41 Year
  Sex: Male
  Weight: 57 kg

DRUGS (2)
  1. KALETRA [Suspect]
     Indication: HIV INFECTION
     Dosage: 800/200 MG TWICE A DAY, PER ORAL
     Route: 048
     Dates: start: 20040419
  2. ZIDOVUDINE W/LAMINVUDINE [Concomitant]

REACTIONS (6)
  - ASTHENIA [None]
  - EYELID PTOSIS [None]
  - HEADACHE [None]
  - PYREXIA [None]
  - TOXOPLASMOSIS [None]
  - UNEVALUABLE EVENT [None]
